FAERS Safety Report 24736221 (Version 1)
Quarter: 2024Q4

REPORT INFORMATION
  Report Type: Spontaneous
  Country: IN (occurrence: IN)
  Receive Date: 20241216
  Receipt Date: 20241216
  Transmission Date: 20250114
  Serious: Yes (Hospitalization)
  Sender: LUPIN
  Company Number: IN-LUPIN PHARMACEUTICALS INC.-2024-12019

PATIENT
  Age: 68 Year
  Sex: Male

DRUGS (8)
  1. RIFAMPIN [Interacting]
     Active Substance: RIFAMPIN
     Indication: Pulmonary tuberculosis
     Dosage: UNK
     Route: 065
  2. ITRACONAZOLE [Interacting]
     Active Substance: ITRACONAZOLE
     Indication: Histoplasmosis
     Dosage: 200 MILLIGRAM, BID
     Route: 048
  3. PREDNISOLONE [Concomitant]
     Active Substance: PREDNISOLONE
     Indication: Sarcoidosis
     Dosage: 1 MILLIGRAM/KILOGRAM
     Route: 065
  4. ISONIAZID [Concomitant]
     Active Substance: ISONIAZID
     Indication: Pulmonary tuberculosis
     Dosage: UNK
     Route: 065
  5. PYRAZINAMIDE [Concomitant]
     Active Substance: PYRAZINAMIDE
     Indication: Pulmonary tuberculosis
     Dosage: UNK
     Route: 065
  6. ETHAMBUTOL [Concomitant]
     Active Substance: ETHAMBUTOL HYDROCHLORIDE
     Indication: Pulmonary tuberculosis
     Dosage: UNK
     Route: 065
  7. AMPHOTERICIN B [Concomitant]
     Active Substance: AMPHOTERICIN B
     Indication: Histoplasmosis
     Dosage: 3 MILLIGRAM/KILOGRAM (THERAPY STOPPED AFTER 14 DAYS AND LATER RESTARTED WITH HIGH DOSE)
     Route: 065
  8. AMPHOTERICIN B [Concomitant]
     Active Substance: AMPHOTERICIN B
     Dosage: 5 MILLIGRAM/KILOGRAM (THERAPY STOPPED AFTER 14 DAYS AND LATER RESTARTED WITH HIGH DOSE)
     Route: 065

REACTIONS (2)
  - Drug interaction [Unknown]
  - Treatment failure [Unknown]
